FAERS Safety Report 16189194 (Version 1)
Quarter: 2019Q2

REPORT INFORMATION
  Report Type: Spontaneous
  Country: US (occurrence: US)
  Receive Date: 20190411
  Receipt Date: 20190411
  Transmission Date: 20190711
  Serious: Yes (Other)
  Sender: FDA-Public Use
  Company Number: None

PATIENT
  Age: 80 Year
  Sex: Male
  Weight: 61.8 kg

DRUGS (7)
  1. OMEPRAZOLE. [Concomitant]
     Active Substance: OMEPRAZOLE
     Dates: start: 20100512
  2. FLUOXETINE [Concomitant]
     Active Substance: FLUOXETINE HYDROCHLORIDE
     Dates: start: 20151204
  3. ASPIRIN. [Concomitant]
     Active Substance: ASPIRIN
     Dates: start: 20100512
  4. LEVOFLOXACIN. [Suspect]
     Active Substance: LEVOFLOXACIN
     Indication: BACTERAEMIA
     Route: 048
     Dates: start: 20190322, end: 20190329
  5. ALLOPURINOL. [Concomitant]
     Active Substance: ALLOPURINOL
     Dates: start: 20100512, end: 20190411
  6. LEVOFLOXACIN. [Suspect]
     Active Substance: LEVOFLOXACIN
     Indication: URINARY TRACT INFECTION
     Route: 048
     Dates: start: 20190322, end: 20190329
  7. METOPROLOL. [Concomitant]
     Active Substance: METOPROLOL
     Dates: start: 20181007

REACTIONS (1)
  - Tendon pain [None]

NARRATIVE: CASE EVENT DATE: 20190329
